FAERS Safety Report 6684029-9 (Version None)
Quarter: 2010Q2

REPORT INFORMATION
  Report Type: 
  Country: None (occurrence: None)
  Receive Date: 20100416
  Receipt Date: 20100402
  Transmission Date: 20101027
  Serious: Yes (Life-Threatening, Hospitalization, Other)
  Sender: FDA-Public Use
  Company Number: TR-TYCO HEALTHCARE/MALLINCKRODT-T201000935

PATIENT
  Age: 8 Year
  Sex: Female

DRUGS (3)
  1. METHYLIN [Suspect]
     Indication: ATTENTION DEFICIT/HYPERACTIVITY DISORDER
     Dosage: 210 MG
     Route: 048
  2. METHYLIN [Suspect]
     Dosage: 5 UNK, BID IN THE MORNING AND AT NOON
  3. METHYLIN [Suspect]
     Dosage: 5 MG, QD IN THE MORNING

REACTIONS (12)
  - AGITATION [None]
  - BLOOD PRESSURE INCREASED [None]
  - CONFUSIONAL STATE [None]
  - DELUSION [None]
  - DEPRESSED MOOD [None]
  - HALLUCINATION [None]
  - HEART RATE INCREASED [None]
  - IRRITABILITY [None]
  - MOOD SWINGS [None]
  - OVERDOSE [None]
  - RESPIRATORY RATE INCREASED [None]
  - SUICIDE ATTEMPT [None]
